FAERS Safety Report 9364899 (Version 3)
Quarter: 2013Q3

REPORT INFORMATION
  Report Type: Spontaneous
  Country: JP (occurrence: JP)
  Receive Date: 20130624
  Receipt Date: 20130708
  Transmission Date: 20140515
  Serious: Yes (Other)
  Sender: FDA-Public Use
  Company Number: JP-GLAXOSMITHKLINE-B0901680A

PATIENT
  Sex: Male

DRUGS (11)
  1. AVOLVE [Suspect]
     Indication: PRODUCT USED FOR UNKNOWN INDICATION
     Route: 048
  2. STAYBLA [Suspect]
     Indication: PRODUCT USED FOR UNKNOWN INDICATION
     Route: 048
  3. URIEF [Concomitant]
     Route: 048
  4. TRANEXAMIC ACID [Concomitant]
     Indication: NASOPHARYNGITIS
     Route: 065
  5. MUCOSAL [Concomitant]
     Indication: NASOPHARYNGITIS
     Route: 048
  6. ASVERIN [Concomitant]
     Indication: NASOPHARYNGITIS
     Route: 048
  7. BRUFEN [Concomitant]
     Indication: NASOPHARYNGITIS
     Route: 048
  8. LIVALO [Concomitant]
     Indication: NASOPHARYNGITIS
     Route: 048
  9. BIO-THREE [Concomitant]
     Indication: NASOPHARYNGITIS
     Route: 048
  10. PROSTAL [Concomitant]
     Indication: NASOPHARYNGITIS
     Route: 048
  11. METHYCOBAL [Concomitant]
     Indication: NASOPHARYNGITIS
     Route: 065

REACTIONS (2)
  - Urinary retention [Recovered/Resolved]
  - Nasopharyngitis [Unknown]
